FAERS Safety Report 6168318-2 (Version None)
Quarter: 2009Q2

REPORT INFORMATION
  Report Type: 
  Country: None (occurrence: None)
  Receive Date: 20090423
  Receipt Date: 20090415
  Transmission Date: 20091009
  Serious: Yes (Death, Congenital Anomaly)
  Sender: FDA-Public Use
  Company Number: GXKR2009GB04668

PATIENT

DRUGS (2)
  1. SERTRALINE [Suspect]
     Dosage: MATERNAL DOSE: 150 MG, TRANSPLACENTAL
     Route: 064
  2. ABILIFY [Suspect]
     Dosage: MATERNAL DOSE: 15 MG QD TRANSPLACENTAL
     Route: 064

REACTIONS (3)
  - ABORTION INDUCED [None]
  - FOETAL MALFORMATION [None]
  - MATERNAL DRUGS AFFECTING FOETUS [None]
